FAERS Safety Report 7575141-0 (Version None)
Quarter: 2011Q2

REPORT INFORMATION
  Report Type: 
  Country: None (occurrence: None)
  Receive Date: 20110627
  Receipt Date: 20090930
  Transmission Date: 20111010
  Serious: Yes (Other)
  Sender: FDA-Public Use
  Company Number: US-BAYER-200934805NA

PATIENT
  Age: 53 Year
  Sex: Female
  Weight: 104 kg

DRUGS (31)
  1. INSULIN [INSULIN] [Concomitant]
     Indication: PRODUCT USED FOR UNKNOWN INDICATION
     Dosage: 70/30 SLIDING SCALE
     Route: 058
  2. LIPITOR [Concomitant]
     Indication: PRODUCT USED FOR UNKNOWN INDICATION
     Dosage: 20 MG, QD
     Route: 048
  3. LASIX [Concomitant]
     Dosage: 30 MG, UNK
     Route: 042
     Dates: start: 20060131, end: 20060131
  4. MANNITOL [Concomitant]
     Dosage: 25 G, UNK
     Route: 042
     Dates: start: 20060131, end: 20060131
  5. PLAVIX [Concomitant]
     Indication: PRODUCT USED FOR UNKNOWN INDICATION
     Dosage: 75 MG, QD
     Route: 048
  6. METOLAZONE [Concomitant]
     Dosage: 5 MG, QD
  7. HEPARIN [Concomitant]
     Dosage: 45000 U, UNK
     Route: 042
     Dates: start: 20060131, end: 20060131
  8. CARBIDOPA [Concomitant]
     Dosage: 100 MG, HS
  9. TRASYLOL [Suspect]
     Indication: CORONARY ARTERY BYPASS
     Dosage: 1 ML, INITIAL DOSE
     Route: 042
     Dates: start: 20060131, end: 20060131
  10. NEXIUM [Concomitant]
     Indication: PRODUCT USED FOR UNKNOWN INDICATION
     Dosage: 40 MG, BID
     Route: 048
  11. LEVOXYL [Concomitant]
     Indication: PRODUCT USED FOR UNKNOWN INDICATION
     Dosage: 88 ?G, QD
     Route: 048
  12. NITROGLYCERIN [Concomitant]
     Indication: PRODUCT USED FOR UNKNOWN INDICATION
     Dosage: 0.4 MG, PRN
     Route: 048
  13. METOPROLOL TARTRATE [Concomitant]
     Dosage: 50 MG ONE HALF 2X DAILY
  14. AMOXIL [Concomitant]
     Dosage: 500 MG, UNK
     Route: 048
     Dates: start: 20060118
  15. PLATELETS [Concomitant]
     Dosage: 395 CCS
     Route: 042
     Dates: start: 20060131, end: 20060131
  16. RED BLOOD CELLS [Concomitant]
     Dosage: 2 U, UNK
     Route: 042
     Dates: start: 20060131, end: 20060131
  17. INSULIN [INSULIN] [Concomitant]
     Dosage: 30 U, UNK
     Route: 058
     Dates: start: 20060131, end: 20060131
  18. ISORDIL [Concomitant]
     Indication: PRODUCT USED FOR UNKNOWN INDICATION
     Dosage: 60 MG, QD
     Route: 048
  19. LASIX [Concomitant]
     Indication: PRODUCT USED FOR UNKNOWN INDICATION
     Dosage: 40 MG, QD
     Route: 048
  20. DIOVAN [Concomitant]
     Indication: PRODUCT USED FOR UNKNOWN INDICATION
     Dosage: 160 MG, QD
     Route: 048
  21. EFFEXOR XR [Concomitant]
     Indication: PRODUCT USED FOR UNKNOWN INDICATION
     Dosage: 150 MG, QD
     Route: 048
  22. CRESTOR [Concomitant]
     Dosage: 10 MG, UNK
     Route: 048
     Dates: start: 20060109
  23. NOREPINEPHRINE BITARTRATE [Concomitant]
     Dosage: 2-4 MCG/HOUR
     Route: 042
     Dates: start: 20060131, end: 20060131
  24. AVANDIA [Concomitant]
     Indication: PRODUCT USED FOR UNKNOWN INDICATION
     Dosage: 4 MG, QD
     Route: 048
  25. MANNITOL [Concomitant]
     Dosage: 12.5 G
     Route: 042
     Dates: start: 20060131, end: 20060131
  26. ALBUMIN (HUMAN) [Concomitant]
     Dosage: 125 G, UNK
     Route: 042
     Dates: start: 20060131, end: 20060131
  27. TRASYLOL [Suspect]
     Indication: CORONARY ARTERY DISEASE
     Dosage: 200 ML PUMP PRIME
     Route: 042
     Dates: start: 20060131, end: 20060131
  28. LOPRESSOR [Concomitant]
     Indication: PRODUCT USED FOR UNKNOWN INDICATION
     Dosage: 50 MG, BID
     Route: 048
  29. ASPIRIN [Concomitant]
     Indication: PRODUCT USED FOR UNKNOWN INDICATION
     Dosage: 81 MG, QD
     Route: 048
  30. CONTRAST MEDIA [Concomitant]
     Indication: ANGIOGRAM
     Dosage: UNK
     Dates: start: 20060120
  31. DOBUTAMINE HCL [Concomitant]
     Dosage: 2.5 +#8211; 5 MCG/KG/MINUTE
     Route: 042
     Dates: start: 20060131, end: 20060131

REACTIONS (14)
  - RENAL FAILURE [None]
  - INJURY [None]
  - FEAR [None]
  - ANHEDONIA [None]
  - ANXIETY [None]
  - UNEVALUABLE EVENT [None]
  - EMOTIONAL DISTRESS [None]
  - NERVOUSNESS [None]
  - DEPRESSION [None]
  - FEAR OF DEATH [None]
  - ANAEMIA [None]
  - MULTI-ORGAN FAILURE [None]
  - RENAL INJURY [None]
  - PAIN [None]
